FAERS Safety Report 17840102 (Version 1)
Quarter: 2020Q2

REPORT INFORMATION
  Report Type: Spontaneous
  Country: US (occurrence: US)
  Receive Date: 20200529
  Receipt Date: 20200529
  Transmission Date: 20200714
  Serious: No
  Sender: FDA-Public Use
  Company Number: US-ACCORD-172935

PATIENT
  Sex: Male

DRUGS (1)
  1. CLONAZEPAM ACCORD HEALTHCARE [Suspect]
     Active Substance: CLONAZEPAM
     Indication: GENERALISED ANXIETY DISORDER
     Route: 048
     Dates: start: 202001, end: 2020

REACTIONS (3)
  - Drug ineffective [Unknown]
  - Off label use [Unknown]
  - Product substitution issue [Unknown]
